FAERS Safety Report 5859325-5 (Version None)
Quarter: 2008Q3

REPORT INFORMATION
  Report Type: 
  Country: None (occurrence: None)
  Receive Date: 20080826
  Receipt Date: 20080826
  Transmission Date: 20090109
  Serious: Yes (Hospitalization)
  Sender: FDA-Public Use
  Company Number: None

PATIENT
  Sex: Female
  Weight: 53.6 kg

DRUGS (19)
  1. CLOLAR [Suspect]
     Dosage: 248 MG
  2. CYTARABINE [Suspect]
     Dosage: 6.2 G
  3. ACYCLOVIR [Concomitant]
  4. ALLUOPURINOL [Concomitant]
  5. AMPHOTERICIN B [Concomitant]
  6. CALCIUM [Concomitant]
  7. CIPROFLOXIXIN [Concomitant]
  8. ESOMEPRAZOLE [Concomitant]
  9. FLUCONAZOLE [Concomitant]
  10. KADIAN [Concomitant]
  11. LACTULOSE [Concomitant]
  12. MAGNESIUM OXIDE [Concomitant]
  13. MEROPENEM [Concomitant]
  14. MICAFUNGIN [Concomitant]
  15. MORPHINE [Concomitant]
  16. NEULASTA [Concomitant]
  17. PREDNISONE TAB [Concomitant]
  18. RISPERIDONE [Concomitant]
  19. ZOFRAN [Concomitant]

REACTIONS (9)
  - AGITATION [None]
  - BLOOD BILIRUBIN INCREASED [None]
  - BLOOD PRESSURE DECREASED [None]
  - CONFUSIONAL STATE [None]
  - DRUG TOXICITY [None]
  - DYSPNOEA [None]
  - FATIGUE [None]
  - LUNG INFILTRATION [None]
  - PYREXIA [None]
